FAERS Safety Report 4718972-4 (Version None)
Quarter: 2005Q3

REPORT INFORMATION
  Report Type: 
  Country: None (occurrence: None)
  Receive Date: 20050719
  Receipt Date: 20050708
  Transmission Date: 20060218
  Serious: Yes (Life-Threatening, Other)
  Sender: FDA-Public Use
  Company Number: 2005099476

PATIENT
  Age: 57 Year
  Sex: Male
  Weight: 93 kg

DRUGS (4)
  1. IDARUBICIN HYDROCHLORIDE POWDER [Suspect]
     Indication: ACUTE MYELOID LEUKAEMIA
     Dosage: 18 MG, DAILY, INTRAVENOUS
     Route: 042
     Dates: start: 20050525
  2. CYTARABINE [Suspect]
     Indication: ACUTE MYELOID LEUKAEMIA
     Dosage: 6 GRAM, TWICE DAILY, INTRAVENOUS
     Route: 042
     Dates: start: 20050525
  3. ETOPOSIDE [Suspect]
     Indication: ACUTE MYELOID LEUKAEMIA
     Dosage: 150 MG, DAILY, INTRAVENOUS
     Route: 042
     Dates: start: 20050525
  4. AMPHOTREICIN B (AMPHOTERICIN B) [Suspect]
     Indication: ILL-DEFINED DISORDER

REACTIONS (4)
  - HYPOKALAEMIA [None]
  - LEUKOPENIA [None]
  - NEUTROPENIA [None]
  - THROMBOCYTOPENIA [None]
